FAERS Safety Report 17318392 (Version 3)
Quarter: 2020Q1

REPORT INFORMATION
  Report Type: Report from Study
  Country: US (occurrence: US)
  Receive Date: 20200124
  Receipt Date: 20200309
  Transmission Date: 20200409
  Serious: Yes (Hospitalization, Other)
  Sender: FDA-Public Use
  Company Number: US-BRISTOL-MYERS SQUIBB COMPANY-BMS-2019-123607

PATIENT
  Age: 72 Year
  Sex: Female
  Weight: 65.1 kg

DRUGS (2)
  1. IPILIMUMAB [Suspect]
     Active Substance: IPILIMUMAB
     Indication: METAPLASTIC BREAST CARCINOMA
     Dosage: 65 MILLIGRAM
     Route: 042
     Dates: start: 20180515, end: 20191202
  2. NIVOLUMAB [Suspect]
     Active Substance: NIVOLUMAB
     Indication: METAPLASTIC BREAST CARCINOMA
     Dosage: 240 MILLIGRAM
     Route: 042
     Dates: start: 20180515, end: 20191202

REACTIONS (6)
  - Adrenal insufficiency [Unknown]
  - Vomiting [Unknown]
  - Hypokalaemia [Unknown]
  - Rash maculo-papular [Not Recovered/Not Resolved]
  - Hyponatraemia [Unknown]
  - Presyncope [Unknown]

NARRATIVE: CASE EVENT DATE: 20191206
